FAERS Safety Report 4675943-4 (Version None)
Quarter: 2005Q2

REPORT INFORMATION
  Report Type: 
  Country: None (occurrence: None)
  Receive Date: 20050527
  Receipt Date: 20050310
  Transmission Date: 20051028
  Serious: No
  Sender: FDA-Public Use
  Company Number: US-GLAXOSMITHKLINE-A0549265A

PATIENT
  Age: 43 Year
  Sex: Female

DRUGS (5)
  1. WELLBUTRIN XL [Suspect]
     Indication: DEPRESSION
     Dosage: 150MG PER DAY
     Route: 048
  2. CLONAZEPAM [Concomitant]
  3. ESTRADIOL [Concomitant]
  4. TYLENOL (CAPLET) [Concomitant]
  5. FOSAMAX [Concomitant]

REACTIONS (2)
  - EAR PAIN [None]
  - HEADACHE [None]
